FAERS Safety Report 16253809 (Version 3)
Quarter: 2019Q2

REPORT INFORMATION
  Report Type: Spontaneous
  Country: YE (occurrence: YE)
  Receive Date: 20190430
  Receipt Date: 20190627
  Transmission Date: 20190711
  Serious: Yes (Other)
  Sender: FDA-Public Use
  Company Number: YE-EMD SERONO-9087557

PATIENT
  Age: 14 Year
  Sex: Male

DRUGS (2)
  1. SAIZEN [Suspect]
     Active Substance: SOMATROPIN
     Indication: GROWTH HORMONE DEFICIENCY
     Route: 058
     Dates: start: 20190206, end: 20190422
  2. SAIZEN [Suspect]
     Active Substance: SOMATROPIN
     Dosage: RESTARTED
     Route: 058
     Dates: start: 2019

REACTIONS (5)
  - Abdominal pain [Recovered/Resolved]
  - Hypokinesia [Recovered/Resolved]
  - Sleep deficit [Recovered/Resolved]
  - Wrong technique in product usage process [Recovered/Resolved]
  - Decreased appetite [Recovered/Resolved]

NARRATIVE: CASE EVENT DATE: 20190422
